FAERS Safety Report 7915715-8 (Version None)
Quarter: 2011Q4

REPORT INFORMATION
  Report Type: 
  Country: None (occurrence: None)
  Receive Date: 20111115
  Receipt Date: 20111026
  Transmission Date: 20120403
  Serious: Yes (Death)
  Sender: FDA-Public Use
  Company Number: FR-VIIV HEALTHCARE LIMITED-B0760480A

PATIENT
  Sex: Male

DRUGS (1)
  1. MARAVIROC [Suspect]
     Indication: HIV INFECTION
     Dosage: 300MG TWICE PER DAY
     Route: 048
     Dates: start: 20091112

REACTIONS (2)
  - HEPATIC FAILURE [None]
  - RENAL FAILURE [None]
